FAERS Safety Report 13977552 (Version 1)
Quarter: 2017Q3

REPORT INFORMATION
  Report Type: Spontaneous
  Country: US (occurrence: US)
  Receive Date: 20170915
  Receipt Date: 20170915
  Transmission Date: 20171128
  Serious: Yes (Hospitalization, Disabling, Other)
  Sender: FDA-Public Use
  Company Number: None

PATIENT
  Age: 37 Year
  Sex: Female
  Weight: 56.7 kg

DRUGS (1)
  1. GADOVIST [Suspect]
     Active Substance: GADOBUTROL
     Indication: NUCLEAR MAGNETIC RESONANCE IMAGING
     Dosage: OTHER FREQUENCY:EVENING;?INTRAVENOUS (NOT OTHERWISE SPECIFIED)
     Route: 042
     Dates: start: 20170327, end: 20170327

REACTIONS (8)
  - Hypoaesthesia [None]
  - Palpitations [None]
  - Paraesthesia [None]
  - Cardio-respiratory arrest [None]
  - Seizure [None]
  - Tremor [None]
  - Tinnitus [None]
  - Vision blurred [None]

NARRATIVE: CASE EVENT DATE: 20170329
